FAERS Safety Report 23486716 (Version 1)
Quarter: 2024Q1

REPORT INFORMATION
  Report Type: Spontaneous
  Country: US (occurrence: None)
  Receive Date: 20240205
  Receipt Date: 20240205
  Transmission Date: 20240410
  Serious: Yes (Life-Threatening, Other)
  Sender: FDA-Public Use
  Company Number: None

PATIENT
  Age: 59 Year
  Sex: Female
  Weight: 95.85 kg

DRUGS (1)
  1. GLATOPA [Suspect]
     Active Substance: GLATIRAMER ACETATE
     Indication: Multiple sclerosis
     Dosage: 1 INJECTION 3X PER WEEK SUBCUTANEOUS
     Route: 058
     Dates: start: 20220613, end: 20240203

REACTIONS (3)
  - Immediate post-injection reaction [None]
  - Anaphylactic reaction [None]
  - Myocardial necrosis marker increased [None]

NARRATIVE: CASE EVENT DATE: 20240203
